FAERS Safety Report 21425917 (Version 1)
Quarter: 2022Q4

REPORT INFORMATION
  Report Type: Spontaneous
  Country: DE (occurrence: DE)
  Receive Date: 20221008
  Receipt Date: 20221008
  Transmission Date: 20230113
  Serious: Yes (Hospitalization)
  Sender: FDA-Public Use
  Company Number: DE-ADRED-08397-01

PATIENT
  Age: 61 Year
  Sex: Male

DRUGS (4)
  1. OXALIPLATIN [Suspect]
     Active Substance: OXALIPLATIN
     Indication: Product used for unknown indication
     Dosage: 14062021
     Route: 065
  2. METOCLOPRAMIDE [Concomitant]
     Active Substance: METOCLOPRAMIDE
     Indication: Product used for unknown indication
     Dosage: 10 MG, REQUIREMENT
  3. macrogol/potassium chloride/sodium carbonate/sodium chloride [Concomitant]
     Indication: Product used for unknown indication
     Dosage: REQUIREMENT , MACROGOL/KALIUMCHLORID/NATRIUMCARBONAT/NATRIUMCHLORID
  4. PANTOPRAZOLE [Concomitant]
     Active Substance: PANTOPRAZOLE
     Indication: Product used for unknown indication
     Dosage: 20 MILLIGRAM DAILY; 20 MG, 1-0-0-0

REACTIONS (12)
  - Hypotension [Unknown]
  - Haemoptysis [Unknown]
  - Acute respiratory failure [Unknown]
  - Chills [Unknown]
  - Tachypnoea [Unknown]
  - Cyanosis [Unknown]
  - General physical health deterioration [Unknown]
  - Dyspnoea [Unknown]
  - Systemic infection [Unknown]
  - Tachycardia [Unknown]
  - Condition aggravated [Unknown]
  - Pyrexia [Unknown]
